FAERS Safety Report 8369992-2 (Version None)
Quarter: 2012Q2

REPORT INFORMATION
  Report Type: 
  Country: None (occurrence: None)
  Receive Date: 20120518
  Receipt Date: 20120514
  Transmission Date: 20120825
  Serious: Yes (Other)
  Sender: FDA-Public Use
  Company Number: DE-ROXANE LABORATORIES, INC.-2012-RO-01253RO

PATIENT
  Sex: Female

DRUGS (4)
  1. PREDNISONE [Suspect]
  2. HYDROXYCHLOROQUINE SULFATE [Suspect]
  3. MYCOPHENOLATE MOFETIL [Suspect]
     Indication: SYSTEMIC LUPUS ERYTHEMATOSUS
     Dosage: 2 G
  4. PERINDOPRIL ERBUMINE [Suspect]

REACTIONS (1)
  - ABORTION INDUCED [None]
